FAERS Safety Report 13045216 (Version 1)
Quarter: 2016Q4

REPORT INFORMATION
  Report Type: Spontaneous
  Country: US (occurrence: US)
  Receive Date: 20161220
  Receipt Date: 20161220
  Transmission Date: 20170207
  Serious: Yes (Hospitalization)
  Sender: FDA-Public Use
  Company Number: US-CONCORDIA PHARMACEUTICALS INC.-E2B_00007943

PATIENT
  Sex: Female

DRUGS (3)
  1. HARVONI [Concomitant]
     Active Substance: LEDIPASVIR\SOFOSBUVIR
     Indication: HEPATITIS C
     Dosage: UNKNOWN
  2. ZONEGRAN [Suspect]
     Active Substance: ZONISAMIDE
     Indication: PRODUCT USED FOR UNKNOWN INDICATION
     Dosage: UNKNOWN
     Route: 048
     Dates: start: 2016, end: 201611
  3. ZONEGRAN [Suspect]
     Active Substance: ZONISAMIDE
     Dosage: DOSE INCREASED (UNKNOWN)
     Dates: start: 201611

REACTIONS (7)
  - Grunting [Unknown]
  - Seizure [Unknown]
  - Decreased appetite [Unknown]
  - Anal incontinence [Unknown]
  - Urinary incontinence [Unknown]
  - Communication disorder [Unknown]
  - Staring [Unknown]

NARRATIVE: CASE EVENT DATE: 2016
